FAERS Safety Report 17151874 (Version 1)
Quarter: 2019Q4

REPORT INFORMATION
  Report Type: Report from Study
  Country: DE (occurrence: DE)
  Receive Date: 20191213
  Receipt Date: 20191213
  Transmission Date: 20200122
  Serious: Yes (Hospitalization, Other)
  Sender: FDA-Public Use
  Company Number: DE-ROCHE-2488061

PATIENT
  Age: 59 Year
  Sex: Female
  Weight: 58.4 kg

DRUGS (57)
  1. DOXORUBICIN [Suspect]
     Active Substance: DOXORUBICIN
     Route: 041
     Dates: start: 20180710, end: 20180710
  2. VINCRISTINE [Suspect]
     Active Substance: VINCRISTINE
     Dosage: (INFUSION RATE 16.66 ML/MIN FROM 12:14)
     Route: 041
     Dates: start: 20180515, end: 20180515
  3. PREDNISONE. [Suspect]
     Active Substance: PREDNISONE
     Indication: DIFFUSE LARGE B-CELL LYMPHOMA
     Route: 048
     Dates: start: 20180421, end: 20180424
  4. FOLSAEURE [Concomitant]
     Active Substance: FOLIC ACID
     Indication: MIXED CONNECTIVE TISSUE DISEASE
     Route: 048
     Dates: end: 20180327
  5. G-CSF [Concomitant]
     Active Substance: GRANULOCYTE COLONY-STIMULATING FACTOR NOS
     Indication: LEUKOPENIA
     Route: 058
     Dates: start: 20180430, end: 20180503
  6. ATORVASTATIN [Concomitant]
     Active Substance: ATORVASTATIN
     Indication: PROPHYLAXIS
     Route: 048
  7. RITUXIMAB. [Suspect]
     Active Substance: RITUXIMAB
     Route: 041
     Dates: start: 20180910
  8. CYCLOPHOSPHAMIDE. [Suspect]
     Active Substance: CYCLOPHOSPHAMIDE
     Route: 041
     Dates: start: 20180928, end: 20180928
  9. PREDNISONE. [Suspect]
     Active Substance: PREDNISONE
     Route: 048
     Dates: start: 20180609, end: 20180612
  10. PREDNISONE. [Suspect]
     Active Substance: PREDNISONE
     Route: 048
     Dates: start: 20180802, end: 20180805
  11. GRANISETRON [Concomitant]
     Active Substance: GRANISETRON
     Indication: PROPHYLAXIS
     Route: 042
     Dates: start: 20180329
  12. L-THYROXIN [LEVOTHYROXINE] [Concomitant]
     Active Substance: LEVOTHYROXINE SODIUM
     Indication: HYPOTHYROIDISM
     Route: 048
  13. REVATIO [Concomitant]
     Active Substance: SILDENAFIL CITRATE
     Indication: PULMONARY FIBROSIS
     Route: 048
  14. RITUXIMAB. [Suspect]
     Active Substance: RITUXIMAB
     Indication: DIFFUSE LARGE B-CELL LYMPHOMA
     Route: 041
     Dates: start: 20180607, end: 20180607
  15. RITUXIMAB. [Suspect]
     Active Substance: RITUXIMAB
     Route: 041
     Dates: start: 20180730, end: 20180730
  16. CYCLOPHOSPHAMIDE. [Suspect]
     Active Substance: CYCLOPHOSPHAMIDE
     Dosage: (INFUSION RATE 4.16 ML/MIN FROM 10:10)
     Route: 041
     Dates: start: 20180515, end: 20180515
  17. PREDNISONE. [Suspect]
     Active Substance: PREDNISONE
     Route: 048
     Dates: start: 20180711, end: 20180714
  18. MTX [METHOTREXATE] [Concomitant]
     Active Substance: METHOTREXATE SODIUM
     Dosage: 10 MG, UNK
     Route: 048
     Dates: start: 20181001
  19. COTRIMOXAZOLE [Concomitant]
     Active Substance: SULFAMETHOXAZOLE\TRIMETHOPRIM
     Indication: PROPHYLAXIS
     Route: 048
     Dates: start: 20180328, end: 20190206
  20. DIMETINDENE [Concomitant]
     Active Substance: DIMETHINDENE
     Indication: PROPHYLAXIS
     Route: 042
     Dates: start: 20180328
  21. PARACETAMOL [Concomitant]
     Active Substance: ACETAMINOPHEN
     Indication: PROPHYLAXIS
     Route: 048
     Dates: start: 20180328
  22. QUENSYL [Concomitant]
     Active Substance: HYDROXYCHLOROQUINE
     Indication: MIXED CONNECTIVE TISSUE DISEASE
     Route: 048
     Dates: end: 20180327
  23. QUENSYL [Concomitant]
     Active Substance: HYDROXYCHLOROQUINE
     Route: 048
     Dates: start: 20180607
  24. RITUXIMAB. [Suspect]
     Active Substance: RITUXIMAB
     Route: 041
     Dates: start: 20180514, end: 20180514
  25. CYCLOPHOSPHAMIDE. [Suspect]
     Active Substance: CYCLOPHOSPHAMIDE
     Dosage: (INFUSION RATE 4.16 ML/MIN FROM 10:25)
     Route: 041
     Dates: start: 20180420, end: 20180420
  26. DOXORUBICIN [Suspect]
     Active Substance: DOXORUBICIN
     Indication: DIFFUSE LARGE B-CELL LYMPHOMA
     Dosage: (INFUSION RATE 16.66 ML/MIN FROM 10:02)
     Route: 041
     Dates: start: 20180420, end: 20180420
  27. DOXORUBICIN [Suspect]
     Active Substance: DOXORUBICIN
     Route: 041
     Dates: start: 20180731, end: 20180731
  28. VINCRISTINE [Suspect]
     Active Substance: VINCRISTINE
     Indication: DIFFUSE LARGE B-CELL LYMPHOMA
     Dosage: (INFUSION RATE 16.66 ML/MIN FROM 12:10 TO 12:20)
     Route: 041
     Dates: start: 20180608, end: 20180608
  29. PREDNISONE. [Suspect]
     Active Substance: PREDNISONE
     Route: 048
     Dates: start: 20180516, end: 20180519
  30. UROMITEXAN [Concomitant]
     Active Substance: MESNA
     Indication: PROPHYLAXIS
     Dosage: 400 OT
     Route: 048
     Dates: start: 20180328
  31. PREDNISOLONE. [Concomitant]
     Active Substance: PREDNISOLONE
     Indication: MIXED CONNECTIVE TISSUE DISEASE
     Route: 042
     Dates: start: 20180328
  32. PREDNISOLONE. [Concomitant]
     Active Substance: PREDNISOLONE
     Indication: PROPHYLAXIS
     Route: 048
     Dates: start: 20181001
  33. ACICLOVIR [Concomitant]
     Active Substance: ACYCLOVIR
     Indication: PROPHYLAXIS
     Route: 048
     Dates: start: 20180328, end: 20190206
  34. RITUXIMAB. [Suspect]
     Active Substance: RITUXIMAB
     Route: 041
     Dates: start: 20180820, end: 20180820
  35. CYCLOPHOSPHAMIDE. [Suspect]
     Active Substance: CYCLOPHOSPHAMIDE
     Route: 041
     Dates: start: 20180731, end: 20180731
  36. MTX [METHOTREXATE] [Concomitant]
     Active Substance: METHOTREXATE SODIUM
     Indication: MIXED CONNECTIVE TISSUE DISEASE
     Route: 048
     Dates: start: 20180327, end: 20180327
  37. RITUXIMAB. [Suspect]
     Active Substance: RITUXIMAB
     Route: 041
     Dates: start: 20180419, end: 20180419
  38. CYCLOPHOSPHAMIDE. [Suspect]
     Active Substance: CYCLOPHOSPHAMIDE
     Indication: DIFFUSE LARGE B-CELL LYMPHOMA
     Dosage: (10:00-12:00)
     Route: 041
     Dates: start: 20180329, end: 20180329
  39. CYCLOPHOSPHAMIDE. [Suspect]
     Active Substance: CYCLOPHOSPHAMIDE
     Route: 041
     Dates: start: 20180710, end: 20180710
  40. DOXORUBICIN [Suspect]
     Active Substance: DOXORUBICIN
     Dosage: (INFUSION RATE 16.66 ML/MIN FROM 09:33 TO 09:43)
     Route: 041
     Dates: start: 20180608, end: 20180608
  41. DOXORUBICIN [Suspect]
     Active Substance: DOXORUBICIN
     Dosage: (INFUSION RATE 10 ML/MIN FROM 09:35 TO 09:45)
     Route: 041
     Dates: start: 20180329, end: 20180329
  42. VINCRISTINE [Suspect]
     Active Substance: VINCRISTINE
     Dosage: (INFUSION RATE 16.66 ML/MIN FROM 12:15)
     Route: 041
     Dates: start: 20180420, end: 20180420
  43. PANTOPRAZOL [PANTOPRAZOLE] [Concomitant]
     Active Substance: PANTOPRAZOLE
     Indication: GENERAL PHYSICAL HEALTH DETERIORATION
     Route: 048
  44. G-CSF [Concomitant]
     Active Substance: GRANULOCYTE COLONY-STIMULATING FACTOR NOS
     Indication: PANCYTOPENIA
     Route: 058
     Dates: start: 20180802, end: 20180806
  45. G-CSF [Concomitant]
     Active Substance: GRANULOCYTE COLONY-STIMULATING FACTOR NOS
     Indication: PROPHYLAXIS
     Route: 058
     Dates: start: 20180723, end: 20180726
  46. G-CSF [Concomitant]
     Active Substance: GRANULOCYTE COLONY-STIMULATING FACTOR NOS
     Route: 058
     Dates: start: 20180810, end: 20180814
  47. RITUXIMAB. [Suspect]
     Active Substance: RITUXIMAB
     Dosage: (100MG HE0142 AND 500MG HP8754)
     Route: 041
     Dates: start: 20180328, end: 20180328
  48. RITUXIMAB. [Suspect]
     Active Substance: RITUXIMAB
     Route: 041
     Dates: start: 20180709, end: 20180709
  49. CYCLOPHOSPHAMIDE. [Suspect]
     Active Substance: CYCLOPHOSPHAMIDE
     Dosage: (INFUSION RATE 4.16 ML/MIN FROM 09:52 TO 11:52)
     Route: 041
     Dates: start: 20180608, end: 20180608
  50. DOXORUBICIN [Suspect]
     Active Substance: DOXORUBICIN
     Dosage: (INFUSION RATE 16.66 ML/MIN FROM 09:49)
     Route: 041
     Dates: start: 20180515, end: 20180515
  51. VINCRISTINE [Suspect]
     Active Substance: VINCRISTINE
     Dosage: (INFUSION RATE 10 ML/MIN FROM 12:23 TO 12:33)
     Route: 041
     Dates: start: 20180329, end: 20180329
  52. PREDNISONE. [Suspect]
     Active Substance: PREDNISONE
     Route: 048
     Dates: start: 20180329, end: 20180401
  53. G-CSF [Concomitant]
     Active Substance: GRANULOCYTE COLONY-STIMULATING FACTOR NOS
     Route: 058
     Dates: start: 20180517, end: 20180522
  54. MESNA. [Concomitant]
     Active Substance: MESNA
     Indication: PROPHYLAXIS
     Route: 042
     Dates: start: 20180329
  55. SIMVASTATIN. [Concomitant]
     Active Substance: SIMVASTATIN
     Indication: PRODUCT USED FOR UNKNOWN INDICATION
     Route: 048
  56. DEKRISTOL [Concomitant]
     Active Substance: CHOLECALCIFEROL
     Indication: GENERAL PHYSICAL HEALTH DETERIORATION
     Dosage: 20.000 OT
     Route: 048
  57. ONDANSETRON [Concomitant]
     Active Substance: ONDANSETRON
     Indication: PROPHYLAXIS
     Route: 048
     Dates: start: 20180328

REACTIONS (24)
  - Chronic hepatitis B [Not Recovered/Not Resolved]
  - Leukopenia [Recovered/Resolved]
  - General physical health deterioration [Recovered/Resolved]
  - Urinary tract infection [Recovered/Resolved]
  - Febrile neutropenia [Recovered/Resolved]
  - Hypotension [Recovered/Resolved]
  - Hypotension [Recovered/Resolved]
  - Osteoarthritis [Not Recovered/Not Resolved]
  - Pancytopenia [Recovered/Resolved]
  - Thrombocytopenia [Recovered/Resolved]
  - Sepsis [Not Recovered/Not Resolved]
  - Spinal fracture [Recovered/Resolved]
  - Anaemia [Recovered/Resolved]
  - Fall [Unknown]
  - Hypokalaemia [Recovered/Resolved]
  - Leukopenia [Recovered/Resolved]
  - Hypotension [Recovered/Resolved]
  - Spinal fracture [Recovered/Resolved]
  - Rash [Recovered/Resolved]
  - Oral candidiasis [Recovered/Resolved]
  - Pyrexia [Recovered/Resolved]
  - Fungal infection [Recovered/Resolved]
  - General physical health deterioration [Recovered/Resolved]
  - Dehydration [Unknown]

NARRATIVE: CASE EVENT DATE: 20180403
